FAERS Safety Report 5904408-4 (Version None)
Quarter: 2008Q4

REPORT INFORMATION
  Report Type: 
  Country: None (occurrence: None)
  Receive Date: 20081001
  Receipt Date: 20080924
  Transmission Date: 20090506
  Serious: Yes (Hospitalization)
  Sender: FDA-Public Use
  Company Number: DE-BRISTOL-MYERS SQUIBB COMPANY-14347637

PATIENT
  Age: 60 Year
  Sex: Female
  Weight: 63 kg

DRUGS (5)
  1. IXABEPILONE [Suspect]
     Indication: BREAST CANCER
     Dates: start: 20080909
  2. DEXAMETHASONE [Concomitant]
     Indication: PREMEDICATION
     Dates: start: 20080909
  3. KEVATRIL [Concomitant]
     Indication: PREMEDICATION
     Dates: start: 20080909
  4. CLEMASTINE FUMARATE [Concomitant]
     Indication: PREMEDICATION
     Dates: start: 20080909
  5. ACETAMINOPHEN [Concomitant]
     Indication: PREMEDICATION
     Dates: start: 20080909

REACTIONS (13)
  - ABDOMINAL PAIN [None]
  - ALOPECIA [None]
  - ANOREXIA [None]
  - BUNDLE BRANCH BLOCK RIGHT [None]
  - CHEST PAIN [None]
  - CONFUSIONAL STATE [None]
  - DIARRHOEA [None]
  - DIZZINESS [None]
  - DYSPNOEA [None]
  - MUSCULOSKELETAL PAIN [None]
  - PANIC ATTACK [None]
  - SLEEP DISORDER [None]
  - URINARY INCONTINENCE [None]
